FAERS Safety Report 7940822-3 (Version None)
Quarter: 2011Q4

REPORT INFORMATION
  Report Type: 
  Country: None (occurrence: None)
  Receive Date: 20111128
  Receipt Date: 20111123
  Transmission Date: 20120403
  Serious: Yes (Other)
  Sender: FDA-Public Use
  Company Number: CA-PFIZER INC-2011253300

PATIENT
  Age: 57 Year
  Sex: Female

DRUGS (6)
  1. VARENICLINE TARTRATE [Suspect]
     Indication: SMOKING CESSATION THERAPY
     Dosage: UNK
     Dates: start: 20111001, end: 20111018
  2. VITAMIN B-12 [Concomitant]
     Dosage: UNK
  3. METFORMIN [Concomitant]
     Dosage: UNK
  4. RAMIPRIL/HYDROCHLOROTHIAZIDE [Concomitant]
     Dosage: 5/25MG
  5. DOMPERIDONE [Concomitant]
     Dosage: 10 MG, UNK
  6. ATORVASTATIN CALCIUM [Concomitant]
     Dosage: 40 MG, UNK

REACTIONS (6)
  - MUSCLE SPASMS [None]
  - NAUSEA [None]
  - CONVERSION DISORDER [None]
  - MUSCLE TWITCHING [None]
  - VOMITING [None]
  - ABNORMAL DREAMS [None]
